FAERS Safety Report 9920101 (Version 1)
Quarter: 2014Q1

REPORT INFORMATION
  Report Type: Spontaneous
  Country: US (occurrence: US)
  Receive Date: 20140224
  Receipt Date: 20140224
  Transmission Date: 20141002
  Serious: No
  Sender: FDA-Public Use
  Company Number: US-PFIZER INC-2014047993

PATIENT
  Sex: Female

DRUGS (2)
  1. LYRICA [Suspect]
     Dosage: UNK
     Dates: end: 201402
  2. LYRICA [Interacting]
     Dosage: UNK
     Dates: start: 20140217

REACTIONS (3)
  - Drug interaction [Unknown]
  - Insomnia [Unknown]
  - Palpitations [Unknown]
